FAERS Safety Report 14204558 (Version 3)
Quarter: 2017Q4

REPORT INFORMATION
  Report Type: Spontaneous
  Country: US (occurrence: US)
  Receive Date: 20171120
  Receipt Date: 20171228
  Transmission Date: 20180321
  Serious: Yes (Hospitalization)
  Sender: FDA-Public Use
  Company Number: US-PFIZER INC-2017495296

PATIENT
  Age: 75 Year
  Sex: Female
  Weight: 87.53 kg

DRUGS (1)
  1. IBRANCE [Suspect]
     Active Substance: PALBOCICLIB
     Indication: BREAST CANCER METASTATIC
     Dosage: 125 MG, CYCLIC [DAYS 1-21 Q 28 DAYS]
     Route: 048
     Dates: start: 20171020, end: 201712

REACTIONS (10)
  - Blood pressure increased [Unknown]
  - Neoplasm progression [Unknown]
  - Diarrhoea [Unknown]
  - Back pain [Not Recovered/Not Resolved]
  - Dehydration [Unknown]
  - Nausea [Unknown]
  - Gait disturbance [Unknown]
  - Pain in extremity [Not Recovered/Not Resolved]
  - Feeding disorder [Unknown]
  - White blood cell count decreased [Unknown]
